FAERS Safety Report 9260161 (Version 2)
Quarter: 2013Q2

REPORT INFORMATION
  Report Type: Spontaneous
  Country: US (occurrence: US)
  Receive Date: 20130429
  Receipt Date: 20130625
  Transmission Date: 20140414
  Serious: No
  Sender: FDA-Public Use
  Company Number: US-PFIZER INC-2013130486

PATIENT
  Age: 57 Year
  Sex: Male

DRUGS (16)
  1. CELEBREX [Suspect]
     Indication: INTERVERTEBRAL DISC DEGENERATION
     Dosage: 200 MG, 1X/DAY
     Route: 048
     Dates: start: 20130305
  2. CELEBREX [Suspect]
     Indication: FIBROMYALGIA
  3. LYRICA [Suspect]
     Indication: FIBROMYALGIA
     Dosage: 75MG, AT 1 CAPSULE 3 TIMES DAILY
     Route: 048
     Dates: start: 20130205
  4. LYRICA [Suspect]
     Indication: INTERVERTEBRAL DISC DEGENERATION
     Dosage: 75 MG, 2X/DAY
     Route: 048
  5. VENTOLIN HFA [Concomitant]
     Dosage: 2 PUFF(S) INHALED 4 TIMES A DAY, PRN
     Route: 045
  6. ASTEPRO [Concomitant]
     Dosage: 2 SPRAYS IN EACH NOSTRIL BID
     Route: 045
  7. EPIPEN [Concomitant]
     Dosage: 0.3 MG, SINGLE
     Route: 030
  8. COZAAR [Concomitant]
     Dosage: 50 MG, 1X/DAY
     Route: 048
  9. NEXIUM [Concomitant]
     Dosage: 40 MG, 1X/DAY
     Route: 048
  10. TYLENOL W/CODEINE NO. 3 [Concomitant]
     Indication: BACK PAIN
     Dosage: 1 DF, 4X/DAY (300MG/30MG-1 TAB EVERY 6 HOURS)
     Route: 048
  11. DEXILANT [Concomitant]
     Dosage: 60 MG, 1X/DAY
     Route: 048
  12. OXYCODONE-ACETAMINOPHEN [Concomitant]
     Indication: BACK PAIN
     Dosage: ONE TABLET THREE TIMES A DAY
     Route: 048
  13. ELAVIL [Concomitant]
     Indication: FIBROMYALGIA
     Dosage: 25 MG, ONCE DAILY TAKE AT BEDTIME
     Route: 048
  14. CYMBALTA [Concomitant]
     Dosage: 60 MG, 1X/DAY
     Route: 048
  15. SKELAXIN [Concomitant]
     Dosage: 800 MG, 3X/DAY
     Route: 048
  16. AMITRIPTYLINE [Concomitant]
     Dosage: 25 MG, 1X/DAY (AT BEDTIME)

REACTIONS (2)
  - Oedema [Unknown]
  - Drug ineffective [Unknown]
